FAERS Safety Report 8525826-4 (Version None)
Quarter: 2012Q3

REPORT INFORMATION
  Report Type: 
  Country: None (occurrence: None)
  Receive Date: 20120720
  Receipt Date: 20120712
  Transmission Date: 20120928
  Serious: Yes (Death)
  Sender: FDA-Public Use
  Company Number: JP-AMGEN-JPNCT2012040100

PATIENT
  Age: 90 Year
  Sex: Male
  Weight: 58 kg

DRUGS (7)
  1. NOVOLIN R [Concomitant]
     Indication: PROPHYLAXIS
     Dosage: UNCERTAINTY
     Route: 042
  2. PREDNISOLONE [Concomitant]
     Indication: IDIOPATHIC THROMBOCYTOPENIC PURPURA
     Dosage: UNK
     Route: 048
     Dates: start: 20120124, end: 20120207
  3. PENTAMIDINE ISETHIONATE [Concomitant]
     Indication: PROPHYLAXIS
     Dosage: UNCERTAINTY
     Route: 042
  4. HEPARIN SODIUM [Concomitant]
     Indication: PROPHYLAXIS
     Dosage: UNCERTAINTY
     Route: 042
  5. FAMOTIDINE [Concomitant]
     Indication: PROPHYLAXIS
     Dosage: UNCERTAINTY
     Route: 042
  6. ROMIPLOSTIM - KHK [Suspect]
     Indication: IDIOPATHIC THROMBOCYTOPENIC PURPURA
     Dosage: 1 MUG/KG, QD
     Route: 058
     Dates: start: 20120207, end: 20120207
  7. LASIX [Concomitant]
     Indication: HEPATIC CIRRHOSIS
     Dosage: UNCERTAINTY
     Route: 042

REACTIONS (1)
  - CIRCULATORY COLLAPSE [None]
